FAERS Safety Report 6262815-7 (Version None)
Quarter: 2009Q3

REPORT INFORMATION
  Report Type: 
  Country: None (occurrence: None)
  Receive Date: 20090709
  Receipt Date: 20090701
  Transmission Date: 20100115
  Serious: Yes (Hospitalization)
  Sender: FDA-Public Use
  Company Number: DE-AMGEN-US354454

PATIENT
  Age: 72 Year
  Sex: Female

DRUGS (1)
  1. ENBREL [Suspect]
     Indication: RHEUMATOID ARTHRITIS
     Route: 058
     Dates: start: 20090208

REACTIONS (3)
  - BLOOD PRESSURE INCREASED [None]
  - MENTAL DISORDER DUE TO A GENERAL MEDICAL CONDITION [None]
  - UNEVALUABLE EVENT [None]
